FAERS Safety Report 5572477-X (Version None)
Quarter: 2007Q4

REPORT INFORMATION
  Report Type: 
  Country: None (occurrence: None)
  Receive Date: 20071222
  Receipt Date: 20071212
  Transmission Date: 20080405
  Serious: Yes (Hospitalization)
  Sender: FDA-Public Use
  Company Number: CA-PFIZER INC-2006118433

PATIENT
  Sex: Female
  Weight: 88.5 kg

DRUGS (13)
  1. SU-011,248 [Suspect]
     Indication: RENAL CELL CARCINOMA STAGE UNSPECIFIED
     Route: 048
  2. SENOKOT [Concomitant]
     Route: 048
  3. DOMPERIDONE [Concomitant]
     Route: 048
     Dates: start: 20040101
  4. MORPHINE [Concomitant]
     Route: 048
     Dates: start: 20040101
  5. COLACE [Concomitant]
     Route: 048
     Dates: start: 20040101
  6. STATEX [Concomitant]
     Route: 048
     Dates: start: 20060101
  7. PROCHLORPERAZINE [Concomitant]
     Route: 048
     Dates: start: 20060101
  8. ELTROXIN [Concomitant]
     Route: 048
     Dates: start: 20060101
  9. PANTOPRAZOLE SODIUM [Concomitant]
     Route: 048
  10. FEVERFEW [Concomitant]
     Route: 048
     Dates: start: 20050301
  11. PREDNISONE [Concomitant]
     Route: 048
     Dates: start: 20060523
  12. LOPERAMIDE HCL [Concomitant]
     Route: 048
     Dates: start: 20060804
  13. CONTRACEPTIVE, UNSPECIFIED [Concomitant]

REACTIONS (3)
  - CHEST PAIN [None]
  - DIARRHOEA [None]
  - VOMITING [None]
